FAERS Safety Report 7286599-9 (Version None)
Quarter: 2011Q1

REPORT INFORMATION
  Report Type: 
  Country: None (occurrence: None)
  Receive Date: 20110210
  Receipt Date: 20110207
  Transmission Date: 20110831
  Serious: Yes (Death, Other)
  Sender: FDA-Public Use
  Company Number: US-PFIZER INC-2011004731

PATIENT
  Age: 49 Year
  Sex: Male

DRUGS (6)
  1. MIRTAZAPINE [Suspect]
     Dosage: 30 MG, UNK
  2. TRAZODONE HYDROCHLORIDE [Suspect]
     Indication: ANXIETY
     Dosage: 50 MG, HS
     Dates: start: 20100925, end: 20101001
  3. VERAPAMIL HYDROCHLORIDE [Concomitant]
     Indication: HYPERTENSION
     Dosage: 180 MG, UNK
  4. TRAZODONE HYDROCHLORIDE [Suspect]
     Dosage: UNK
     Dates: start: 20100101, end: 20101119
  5. BUSPIRONE [Suspect]
     Indication: ANXIETY
     Dosage: 15 MG, UNK
     Dates: end: 20090101
  6. GABAPENTIN [Suspect]
     Dosage: 300 MG, UNK
     Dates: start: 20100925, end: 20100930

REACTIONS (8)
  - ABDOMINAL DISCOMFORT [None]
  - HEADACHE [None]
  - DEPRESSION [None]
  - CHEST PAIN [None]
  - ANXIETY [None]
  - FEAR OF WEIGHT GAIN [None]
  - COMPLETED SUICIDE [None]
  - DYSPEPSIA [None]
